FAERS Safety Report 12584839 (Version 3)
Quarter: 2017Q1

REPORT INFORMATION
  Report Type: Spontaneous
  Country: US (occurrence: US)
  Receive Date: 20160722
  Receipt Date: 20170103
  Transmission Date: 20170428
  Serious: No
  Sender: FDA-Public Use
  Company Number: US-ACTELION-A-US2016-139201

PATIENT
  Age: 43 Year
  Sex: Male

DRUGS (1)
  1. VALCHLOR [Suspect]
     Active Substance: MECHLORETHAMINE
     Indication: MYCOSIS FUNGOIDES
     Dosage: UNK, QD
     Route: 061
     Dates: start: 20160621

REACTIONS (9)
  - Drug ineffective [Unknown]
  - Application site erythema [Not Recovered/Not Resolved]
  - Condition aggravated [Unknown]
  - Skin disorder [Unknown]
  - Application site pruritus [Not Recovered/Not Resolved]
  - Mycosis fungoides [Unknown]
  - Application site discolouration [Not Recovered/Not Resolved]
  - Rash papular [Not Recovered/Not Resolved]
  - Application site swelling [Unknown]
